FAERS Safety Report 7407263-9 (Version None)
Quarter: 2011Q2

REPORT INFORMATION
  Report Type: 
  Country: None (occurrence: None)
  Receive Date: 20110411
  Receipt Date: 20110331
  Transmission Date: 20111010
  Serious: Yes (Other)
  Sender: FDA-Public Use
  Company Number: US-AMGEN-USASP2011012342

PATIENT
  Age: 37 Year
  Sex: Female

DRUGS (1)
  1. ENBREL [Suspect]
     Indication: RHEUMATOID ARTHRITIS
     Dates: start: 20080324

REACTIONS (8)
  - HYPERHIDROSIS [None]
  - PALPITATIONS [None]
  - FUNGAL INFECTION [None]
  - INJECTION SITE REACTION [None]
  - MALAISE [None]
  - DIZZINESS [None]
  - FEELING HOT [None]
  - RASH [None]
